FAERS Safety Report 6174821-1 (Version None)
Quarter: 2009Q2

REPORT INFORMATION
  Report Type: 
  Country: None (occurrence: None)
  Receive Date: 20090430
  Receipt Date: 20081119
  Transmission Date: 20091009
  Serious: No
  Sender: FDA-Public Use
  Company Number: US-ASTRAZENECA-2008UW25982

PATIENT
  Age: 60 Year
  Sex: Female

DRUGS (4)
  1. NEXIUM [Suspect]
     Indication: GASTROOESOPHAGEAL REFLUX DISEASE
     Dosage: 40 MG
     Route: 048
     Dates: start: 20050101
  2. RESTASIS [Concomitant]
  3. LOVASTATIN [Concomitant]
  4. MULTI-VITAMINS [Concomitant]

REACTIONS (1)
  - VITAMIN D DEFICIENCY [None]
